FAERS Safety Report 10273099 (Version 1)
Quarter: 2014Q1

REPORT INFORMATION
  Report Type: Spontaneous
  Country: US (occurrence: None)
  Receive Date: 20140306
  Receipt Date: 20140306
  Transmission Date: 20141002
  Serious: Yes (Other)
  Sender: FDA-Public Use
  Company Number: 163-21880-13083476

PATIENT
  Age: 87 Year
  Sex: Male
  Weight: 53.07 kg

DRUGS (5)
  1. REVLIMID (LENALIDOMIDE) (10 MILLIGRAM, CAPSULES) [Suspect]
     Indication: PLASMA CELL MYELOMA
     Dosage: 10 MG, 21 IN 21 D, PO 04/ 2013 - 07/2013 THERAPY DATES
     Route: 048
     Dates: start: 201304, end: 201307
  2. DEXAMETHASONE [Concomitant]
  3. MARIINOL (DRONABINOL) [Concomitant]
  4. ZOLOFT (SERTRALIN HYDROCHLORIDE) [Concomitant]
  5. IRON [Concomitant]

REACTIONS (1)
  - Neutrophil count decreased [None]
